FAERS Safety Report 7285548-7 (Version None)
Quarter: 2011Q1

REPORT INFORMATION
  Report Type: 
  Country: None (occurrence: None)
  Receive Date: 20110210
  Receipt Date: 20110207
  Transmission Date: 20110831
  Serious: Yes (Death, Hospitalization)
  Sender: FDA-Public Use
  Company Number: JP-ABBOTT-10P-087-0627174-00

PATIENT
  Sex: Male

DRUGS (6)
  1. NORVIR [Suspect]
     Indication: HIV INFECTION
     Route: 048
     Dates: start: 20090401, end: 20100104
  2. ISENTRESS [Suspect]
     Indication: HIV INFECTION
     Route: 048
     Dates: start: 20090401, end: 20100104
  3. EPIVIR [Suspect]
     Indication: HIV INFECTION
     Route: 048
     Dates: start: 20090401, end: 20100104
  4. MS CONTIN [Concomitant]
     Indication: NEURALGIA
     Dates: start: 20090619, end: 20100104
  5. NOVACT M FUJISAWA [Concomitant]
     Indication: FACTOR IX DEFICIENCY
     Dates: start: 20090401, end: 20100104
  6. PREZISTA [Suspect]
     Indication: HIV INFECTION
     Route: 048
     Dates: start: 20090401, end: 20100104

REACTIONS (1)
  - HAEMORRHAGE INTRACRANIAL [None]
